FAERS Safety Report 7380666-7 (Version None)
Quarter: 2011Q1

REPORT INFORMATION
  Report Type: 
  Country: None (occurrence: None)
  Receive Date: 20110321
  Receipt Date: 20110314
  Transmission Date: 20110831
  Serious: Yes (Death, Hospitalization)
  Sender: FDA-Public Use
  Company Number: 2010SP003620

PATIENT
  Age: 74 Year
  Sex: Male
  Weight: 82.7 kg

DRUGS (17)
  1. FUROSEMIDE [Concomitant]
  2. COMBIVENT [Concomitant]
  3. GUAIFENESIN [Concomitant]
  4. PRAVASTATING [Concomitant]
  5. FLUNISOLIDE [Concomitant]
  6. SYMBICORT [Concomitant]
  7. WARFARIN [Concomitant]
  8. TERAZOSIN [Concomitant]
  9. POTASSIUM CHLORIDE [Concomitant]
  10. ARFORMOTEROL [Suspect]
     Indication: CHRONIC OBSTRUCTIVE PULMONARY DISEASE
     Dosage: 15 UG;INHALATION
     Route: 055
     Dates: start: 20101227
  11. ARFORMOTEROL [Suspect]
     Indication: CHRONIC OBSTRUCTIVE PULMONARY DISEASE
     Dosage: 15 UG;INHALATION
     Route: 055
     Dates: start: 20100727, end: 20101217
  12. DILTIAZEM [Concomitant]
  13. POTASSIUM CHLORIDE [Concomitant]
  14. OMEPRAZOLE [Concomitant]
  15. LISINOPRIL [Concomitant]
  16. HYDROCHLOROTHIAZIDE [Concomitant]
  17. PILMICORT [Concomitant]

REACTIONS (10)
  - ATELECTASIS [None]
  - ALPHA-1 ANTI-TRYPSIN DEFICIENCY [None]
  - CONDITION AGGRAVATED [None]
  - BULLOUS LUNG DISEASE [None]
  - BRONCHIECTASIS [None]
  - PULMONARY FIBROSIS [None]
  - EMPHYSEMA [None]
  - CHRONIC OBSTRUCTIVE PULMONARY DISEASE [None]
  - BRONCHITIS [None]
  - CARDIAC ENZYMES INCREASED [None]
